FAERS Safety Report 4989080-2 (Version None)
Quarter: 2006Q2

REPORT INFORMATION
  Report Type: 
  Country: None (occurrence: None)
  Receive Date: 20060425
  Receipt Date: 20060410
  Transmission Date: 20061013
  Serious: Yes (Death, Hospitalization)
  Sender: FDA-Public Use
  Company Number: A200850

PATIENT
  Age: 30 Year
  Sex: Male

DRUGS (10)
  1. ZIPRASIDONE HCL [Suspect]
     Indication: SCHIZOPHRENIA
     Dosage: 160 MG BID, ORAL
     Route: 048
     Dates: start: 20011217
  2. MANDOLGIN (TRAMADOL) [Suspect]
     Indication: ILL-DEFINED DISORDER
     Dosage: ORAL
     Route: 048
     Dates: start: 20011018
  3. REMERON [Suspect]
     Indication: SCHIZOPHRENIA, PARANOID TYPE
     Dosage: ORAL
     Route: 048
     Dates: start: 20011027
  4. EFFEXOR [Suspect]
     Indication: SCHIZOPHRENIA, PARANOID TYPE
     Dosage: 75 MG DAILY, ORAL
     Route: 048
  5. ACETAMINOPHEN [Concomitant]
  6. ZOPICLONE (ZOPICLONE) [Concomitant]
  7. NOZINAN (LEVOMEPROMAZINE) [Concomitant]
  8. CLONAZEPAM [Concomitant]
  9. OXAZEPAM [Concomitant]
  10. LACTULOSE [Concomitant]

REACTIONS (15)
  - ARTERIOSCLEROSIS [None]
  - CARDIAC ARREST [None]
  - COMPLETED SUICIDE [None]
  - DIZZINESS [None]
  - DRUG TOXICITY [None]
  - EPISTAXIS [None]
  - HEADACHE [None]
  - INFLUENZA [None]
  - MALAISE [None]
  - NAUSEA [None]
  - PNEUMONIA [None]
  - PULMONARY OEDEMA [None]
  - SENSORY DISTURBANCE [None]
  - SUDDEN DEATH [None]
  - VISUAL DISTURBANCE [None]
